FAERS Safety Report 5491266-8 (Version None)
Quarter: 2007Q4

REPORT INFORMATION
  Report Type: 
  Country: None (occurrence: None)
  Receive Date: 20071017
  Receipt Date: 20071005
  Transmission Date: 20080405
  Serious: Yes (Death)
  Sender: FDA-Public Use
  Company Number: S07-FRA-02578-01

PATIENT
  Age: 28 Year
  Sex: Female
  Weight: 60 kg

DRUGS (5)
  1. ESCITALOPRAM [Suspect]
     Indication: MAJOR DEPRESSION
     Dosage: 20 MG QD PO
     Route: 048
     Dates: start: 20070518, end: 20070524
  2. ANTIPSYCHOTICS [Concomitant]
  3. RISPERIDONE [Concomitant]
  4. CLONAZEPAM [Concomitant]
  5. NOCTAMIDE (LORMETAZEPAM) [Concomitant]

REACTIONS (2)
  - ASPHYXIA [None]
  - COMPLETED SUICIDE [None]
